FAERS Safety Report 4442946-4 (Version None)
Quarter: 2004Q3

REPORT INFORMATION
  Report Type: 
  Country: None (occurrence: None)
  Receive Date: 20040728
  Receipt Date: 20040618
  Transmission Date: 20050211
  Serious: No
  Sender: FDA-Public Use
  Company Number: USA040566639

PATIENT
  Age: 14 Year
  Sex: Male
  Weight: 55 kg

DRUGS (1)
  1. STRATTERA [Suspect]
     Indication: ATTENTION DEFICIT/HYPERACTIVITY DISORDER
     Dosage: 80 MG
     Dates: start: 20030101

REACTIONS (3)
  - CYST [None]
  - DYSURIA [None]
  - PRESCRIBED OVERDOSE [None]
